FAERS Safety Report 14893477 (Version 5)
Quarter: 2023Q1

REPORT INFORMATION
  Report Type: Report from Study
  Country: US (occurrence: US)
  Receive Date: 20180514
  Receipt Date: 20230323
  Transmission Date: 20230417
  Serious: Yes (Other)
  Sender: FDA-Public Use
  Company Number: US-SHIRE-US201816558

PATIENT
  Sex: Female
  Weight: 73 kg

DRUGS (23)
  1. HUMAN IMMUNOGLOBULIN G\HYALURONIDASE RECOMBINANT HUMAN [Suspect]
     Active Substance: HUMAN IMMUNOGLOBULIN G\HYALURONIDASE RECOMBINANT HUMAN
     Indication: Immunodeficiency common variable
     Dosage: UNK UNK, MONTHLY
     Route: 065
  2. CUVITRU [Suspect]
     Active Substance: HUMAN IMMUNOGLOBULIN G
     Indication: Immunodeficiency
     Dosage: 15 GRAM, 1/WEEK
     Route: 058
     Dates: start: 20221207
  3. ACETAMINOPHEN [Concomitant]
     Active Substance: ACETAMINOPHEN
  4. DIPHENHYDRAMINE [Concomitant]
     Active Substance: DIPHENHYDRAMINE
  5. EPINEPHRINE [Concomitant]
     Active Substance: EPINEPHRINE
  6. Lmx [Concomitant]
  7. CYMBALTA [Concomitant]
     Active Substance: DULOXETINE HYDROCHLORIDE
  8. DICYCLOMINE [Concomitant]
     Active Substance: DICYCLOMINE HYDROCHLORIDE
  9. CETIRIZINE [Concomitant]
     Active Substance: CETIRIZINE HYDROCHLORIDE
  10. CYANOCOBALAMIN [Concomitant]
     Active Substance: CYANOCOBALAMIN
  11. HYDROCHLOROTHIAZIDE [Concomitant]
     Active Substance: HYDROCHLOROTHIAZIDE
  12. METOPROLOL SUCCINATE [Concomitant]
     Active Substance: METOPROLOL SUCCINATE
  13. METHOCARBAMOL [Concomitant]
     Active Substance: METHOCARBAMOL
  14. CALCIUM [Concomitant]
     Active Substance: CALCIUM
  15. PROAIR DIGIHALER [Concomitant]
     Active Substance: ALBUTEROL SULFATE
  16. OMEPRAZOLE [Concomitant]
     Active Substance: OMEPRAZOLE
  17. OXYCODONE [Concomitant]
     Active Substance: OXYCODONE
  18. ZETONNA [Concomitant]
     Active Substance: CICLESONIDE
  19. VITAMIN D3 [Concomitant]
     Active Substance: CHOLECALCIFEROL
  20. DICYCLOMINE HYDROCHLORIDE [Concomitant]
     Active Substance: DICYCLOMINE HYDROCHLORIDE
  21. CETIRIZINE HCL [Concomitant]
     Active Substance: CETIRIZINE HYDROCHLORIDE
  22. OXYCODONE HYDROCHLORIDE [Concomitant]
     Active Substance: OXYCODONE HYDROCHLORIDE
  23. PROGESTERONE [Concomitant]
     Active Substance: PROGESTERONE

REACTIONS (11)
  - Eye infection [Not Recovered/Not Resolved]
  - Sinus headache [Unknown]
  - Sinusitis [Unknown]
  - Bronchitis [Unknown]
  - Candida infection [Unknown]
  - Productive cough [Unknown]
  - Feeling abnormal [Unknown]
  - Malaise [Unknown]
  - Fatigue [Unknown]
  - Discomfort [Unknown]
  - Infusion site pain [Unknown]
